FAERS Safety Report 5199609-X (Version None)
Quarter: 2007Q1

REPORT INFORMATION
  Report Type: 
  Country: None (occurrence: None)
  Receive Date: 20070102
  Receipt Date: 20070102
  Transmission Date: 20070707
  Serious: Yes (Life-Threatening, Hospitalization)
  Sender: FDA-Public Use
  Company Number: None

PATIENT
  Age: 85 Year
  Sex: Male
  Weight: 64 kg

DRUGS (11)
  1. CLOPIDOGREL [Suspect]
     Indication: CORONARY ARTERIAL STENT INSERTION
     Dosage: 75MG QD PO
     Route: 048
     Dates: start: 20060221, end: 20061206
  2. ASPIRIN [Suspect]
     Indication: CORONARY ARTERY DISEASE
     Dosage: 325MG QD PO
     Route: 048
     Dates: start: 19940802, end: 20061206
  3. ATORVASTATIN CALCIUM [Concomitant]
  4. ASPIRIN [Concomitant]
  5. RANITIDINE [Concomitant]
  6. QUININE [Concomitant]
  7. METOPROLOL SUCCINATE [Concomitant]
  8. ELODOLAC [Concomitant]
  9. DOCUSATE NA [Concomitant]
  10. GEMFIBROZIL [Concomitant]
  11. OMEPRAZOLE [Concomitant]

REACTIONS (3)
  - ANAEMIA [None]
  - DUODENAL ULCER [None]
  - UPPER GASTROINTESTINAL HAEMORRHAGE [None]
